FAERS Safety Report 5866531-2 (Version None)
Quarter: 2008Q3

REPORT INFORMATION
  Report Type: 
  Country: None (occurrence: None)
  Receive Date: 20080902
  Receipt Date: 20080902
  Transmission Date: 20090109
  Serious: Yes (Hospitalization)
  Sender: FDA-Public Use
  Company Number: PHEH1996US01234

PATIENT
  Sex: Male
  Weight: 98 kg

DRUGS (13)
  1. SANDIMMUNE [Suspect]
     Route: 048
     Dates: start: 19950821
  2. IMURAN [Concomitant]
  3. MULTIPLE VITAMIN [Concomitant]
  4. METHOTREXATE [Concomitant]
  5. CARAFATE [Concomitant]
  6. ZOVIRAX [Concomitant]
  7. MYCELEX [Concomitant]
  8. LASIX [Concomitant]
  9. POTASSIUM CHLORIDE [Concomitant]
  10. MA OX [Concomitant]
  11. FERGON (FERROUS GLUCONATE) [Concomitant]
  12. RESTORIL [Concomitant]
  13. BACTRIM DS [Concomitant]

REACTIONS (1)
  - TRANSPLANT REJECTION [None]
